FAERS Safety Report 25945550 (Version 4)
Quarter: 2025Q4

REPORT INFORMATION
  Report Type: Report from Study
  Country: CA (occurrence: CA)
  Receive Date: 20251021
  Receipt Date: 20251222
  Transmission Date: 20260118
  Serious: Yes (Other)
  Sender: PFIZER
  Company Number: CA-PFIZER INC-202500053196

PATIENT
  Age: 77 Year
  Sex: Female
  Weight: 57 kg

DRUGS (7)
  1. IXIFI [Suspect]
     Active Substance: INFLIXIMAB-QBTX
     Indication: Crohn^s disease
     Dosage: 10 MG/KG, EVERY 4 WEEKS
     Route: 042
     Dates: start: 20250513
  2. IXIFI [Suspect]
     Active Substance: INFLIXIMAB-QBTX
     Dosage: 10 MG/KG, EVERY 4 WEEKS
     Route: 042
     Dates: start: 20250618
  3. IXIFI [Suspect]
     Active Substance: INFLIXIMAB-QBTX
     Dosage: 500MG AFTER 5 WEEKS
     Route: 042
     Dates: start: 20250723
  4. IXIFI [Suspect]
     Active Substance: INFLIXIMAB-QBTX
     Dosage: 500 MG, 7 WEEKS AND 6 DAYS (10 MG/KG EVERY 4 WEEKS)
     Route: 042
     Dates: start: 20250916
  5. IXIFI [Suspect]
     Active Substance: INFLIXIMAB-QBTX
     Dosage: 500 MG, 4 WEEKS AND 3 DAYS (10MG/KG, EVERY 4 WEEKS)
     Route: 042
     Dates: start: 20251017
  6. IXIFI [Suspect]
     Active Substance: INFLIXIMAB-QBTX
     Dosage: 500 MG, 4 WEEKS (10MG/KG, EVERY 4 WEEK)
     Route: 042
     Dates: start: 20251118
  7. IXIFI [Suspect]
     Active Substance: INFLIXIMAB-QBTX
     Dosage: 500 MG, AFTER 4 WEEKS (10 MG/KG, EVERY 4 WEEKS)
     Route: 042
     Dates: start: 20251216

REACTIONS (10)
  - Oxygen saturation decreased [Not Recovered/Not Resolved]
  - Blood pressure systolic increased [Recovering/Resolving]
  - Condition aggravated [Recovering/Resolving]
  - Vulvovaginal discomfort [Unknown]
  - Anorectal discomfort [Unknown]
  - Arthralgia [Recovered/Resolved]
  - Heart rate increased [Recovering/Resolving]
  - Off label use [Unknown]
  - Off label use [Unknown]
  - Intentional product use issue [Unknown]

NARRATIVE: CASE EVENT DATE: 20250101
